FAERS Safety Report 15583136 (Version 1)
Quarter: 2018Q4

REPORT INFORMATION
  Report Type: Spontaneous
  Country: US (occurrence: US)
  Receive Date: 20181105
  Receipt Date: 20181105
  Transmission Date: 20190205
  Serious: No
  Sender: FDA-Public Use
  Company Number: US-BIOGEN-2018BI00654132

PATIENT
  Age: 46 Year
  Sex: Male

DRUGS (1)
  1. PLEGRIDY [Suspect]
     Active Substance: PEGINTERFERON BETA-1A
     Indication: PRODUCT USED FOR UNKNOWN INDICATION
     Dosage: PLEGRIDY PEN INJ 2 X 125MCG
     Route: 058
     Dates: start: 201610

REACTIONS (2)
  - Influenza like illness [Unknown]
  - Injection site rash [Unknown]

NARRATIVE: CASE EVENT DATE: 20181009
